FAERS Safety Report 12313655 (Version 5)
Quarter: 2016Q3

REPORT INFORMATION
  Report Type: Report from Study
  Country: AU (occurrence: AU)
  Receive Date: 20160428
  Receipt Date: 20160713
  Transmission Date: 20161109
  Serious: Yes (Death, Hospitalization, Other)
  Sender: FDA-Public Use
  Company Number: AU-ACTELION-A-CH2016-135022

PATIENT
  Age: 78 Year
  Sex: Female

DRUGS (10)
  1. TADALAFIL [Suspect]
     Active Substance: TADALAFIL
     Indication: PULMONARY ARTERIAL HYPERTENSION
     Dosage: 20 MG, QD
     Route: 048
     Dates: start: 20160322, end: 20160411
  2. SILDENAFIL. [Concomitant]
     Active Substance: SILDENAFIL
  3. PERINDOPRIL [Concomitant]
     Active Substance: PERINDOPRIL
     Dosage: 4 MG, OD
  4. WARFARIN [Concomitant]
     Active Substance: WARFARIN
  5. METOPROLOL. [Concomitant]
     Active Substance: METOPROLOL
     Dosage: 25 MG, BID
  6. FRUSEMIDE [Concomitant]
     Active Substance: FUROSEMIDE
     Dosage: 40 MG, OD
  7. SPIRONOLACTONE. [Concomitant]
     Active Substance: SPIRONOLACTONE
     Dosage: 42.5 MG, OD
  8. OPSUMIT [Suspect]
     Active Substance: MACITENTAN
     Indication: PULMONARY ARTERIAL HYPERTENSION
     Dosage: 10 MG, QD
     Route: 048
     Dates: start: 20160309, end: 20160415
  9. OPSUMIT [Suspect]
     Active Substance: MACITENTAN
     Dosage: UNK
     Route: 048
  10. CADUET [Concomitant]
     Active Substance: AMLODIPINE BESYLATE\ATORVASTATIN CALCIUM
     Dosage: UNK, OD

REACTIONS (12)
  - Vessel perforation [Unknown]
  - Cardio-respiratory arrest [Fatal]
  - Dyspnoea [Unknown]
  - Cough [Unknown]
  - Haematocrit decreased [Recovered/Resolved]
  - Nasopharyngitis [Unknown]
  - Haemoglobin decreased [Recovered/Resolved]
  - Red blood cell count decreased [Recovered/Resolved]
  - Thrombocytopenia [Unknown]
  - Anaemia [Recovered/Resolved]
  - Pulmonary oedema [Recovered/Resolved]
  - Lung abscess [Unknown]

NARRATIVE: CASE EVENT DATE: 20160411
